FAERS Safety Report 8521865-8 (Version None)
Quarter: 2012Q3

REPORT INFORMATION
  Report Type: 
  Country: None (occurrence: None)
  Receive Date: 20120719
  Receipt Date: 20120521
  Transmission Date: 20120928
  Serious: No
  Sender: FDA-Public Use
  Company Number: US-BRISTOL-MYERS SQUIBB COMPANY-16587867

PATIENT
  Age: 82 Year
  Sex: Male

DRUGS (1)
  1. YERVOY [Suspect]
     Dosage: LAST TREATMENT:04MAY2012

REACTIONS (1)
  - INSOMNIA [None]
